FAERS Safety Report 4406599-3 (Version None)
Quarter: 2004Q3

REPORT INFORMATION
  Report Type: 
  Country: None (occurrence: None)
  Receive Date: 20040723
  Receipt Date: 20040713
  Transmission Date: 20050211
  Serious: Yes (Life-Threatening)
  Sender: FDA-Public Use
  Company Number: JP-GLAXOSMITHKLINE-B0339145A

PATIENT
  Age: 83 Year
  Sex: Female

DRUGS (6)
  1. ZOVIRAX [Suspect]
     Indication: HERPES ZOSTER
     Dosage: 250MG TWICE PER DAY
     Route: 042
     Dates: start: 20040528, end: 20040531
  2. CARVEDILOL [Concomitant]
     Route: 048
  3. DIART [Concomitant]
     Route: 048
  4. DIOVAN [Concomitant]
     Route: 048
  5. NORVASC [Concomitant]
     Route: 048
  6. MARZULENE [Concomitant]
     Route: 048

REACTIONS (1)
  - BLOOD PRESSURE DECREASED [None]
